FAERS Safety Report 21599747 (Version 4)
Quarter: 2023Q1

REPORT INFORMATION
  Report Type: Spontaneous
  Country: PT (occurrence: PT)
  Receive Date: 20221115
  Receipt Date: 20230323
  Transmission Date: 20230417
  Serious: Yes (Hospitalization, Disabling, Other)
  Sender: FDA-Public Use
  Company Number: PT-MYLANLABS-2022M1118622

PATIENT
  Age: 29 Year
  Sex: Female

DRUGS (2)
  1. ARIPIPRAZOLE [Suspect]
     Active Substance: ARIPIPRAZOLE
     Indication: Psychotic disorder
     Dosage: UNK
     Route: 048
  2. ARIPIPRAZOLE [Suspect]
     Active Substance: ARIPIPRAZOLE
     Dosage: UNK
     Route: 065

REACTIONS (9)
  - Pancreatitis acute [Recovered/Resolved with Sequelae]
  - Abdominal pain [Recovered/Resolved]
  - Cholestasis [Recovered/Resolved]
  - Pancreatitis necrotising [Recovered/Resolved]
  - Vomiting [Recovering/Resolving]
  - Abdominal pain upper [Recovered/Resolved]
  - Necrosis [Recovered/Resolved]
  - Psychotic disorder [Recovered/Resolved]
  - Product use in unapproved indication [Unknown]
